FAERS Safety Report 24445557 (Version 1)
Quarter: 2024Q4

REPORT INFORMATION
  Report Type: Spontaneous
  Country: US (occurrence: US)
  Receive Date: 20241016
  Receipt Date: 20241016
  Transmission Date: 20250115
  Serious: No
  Sender: AMGEN
  Company Number: US-AMGEN-USASP2024202624

PATIENT
  Sex: Female

DRUGS (33)
  1. OTEZLA [Suspect]
     Active Substance: APREMILAST
     Indication: Psoriasis
     Dosage: UNK
     Route: 065
  2. PREDNISONE [Suspect]
     Active Substance: PREDNISONE
     Indication: Product used for unknown indication
     Dosage: UNK
     Route: 065
  3. AZITHROMYCIN [Concomitant]
     Active Substance: AZITHROMYCIN
     Dosage: UNK
     Route: 065
  4. FLUCONAZOLE [Concomitant]
     Active Substance: FLUCONAZOLE
     Dosage: UNK
     Route: 065
  5. MAGNESIUM [Concomitant]
     Active Substance: MAGNESIUM
     Dosage: UNK
     Route: 065
  6. KETOTIFEN FUMARATE [Concomitant]
     Active Substance: KETOTIFEN FUMARATE
     Dosage: UNK
     Route: 065
  7. VITAMIN D [Concomitant]
     Active Substance: VITAMIN D NOS
     Dosage: UNK
     Route: 065
  8. FLONASE [Concomitant]
     Active Substance: FLUTICASONE PROPIONATE
  9. ADVAIR HFA [Concomitant]
     Active Substance: FLUTICASONE PROPIONATE\SALMETEROL XINAFOATE
     Route: 065
  10. NORVASC [Concomitant]
     Active Substance: AMLODIPINE BESYLATE
     Dosage: UNK
     Route: 065
  11. SINGULAIR [Concomitant]
     Active Substance: MONTELUKAST SODIUM
     Dosage: UNK
     Route: 065
  12. NEURONTIN [Concomitant]
     Active Substance: GABAPENTIN
     Dosage: UNK
     Route: 065
  13. HYDROCODONE BITARTRATE [Concomitant]
     Active Substance: HYDROCODONE BITARTRATE
     Dosage: HYDROCODONE BITARTRATE ER
     Route: 065
  14. TOPAMAX [Concomitant]
     Active Substance: TOPIRAMATE
     Dosage: UNK
     Route: 065
  15. EPIPEN JR [Concomitant]
     Active Substance: EPINEPHRINE
     Dosage: UNK
     Route: 065
  16. COMPAZINE [Concomitant]
     Active Substance: PROCHLORPERAZINE MALEATE
     Dosage: UNK
     Route: 065
  17. DUONEB [Concomitant]
     Active Substance: ALBUTEROL SULFATE\IPRATROPIUM BROMIDE
     Dosage: UNK
     Route: 065
  18. FLEXERIL [Concomitant]
     Active Substance: CYCLOBENZAPRINE HYDROCHLORIDE
     Dosage: UNK
     Route: 065
  19. BENADRYL ALLERGY [Concomitant]
     Active Substance: DIPHENHYDRAMINE HYDROCHLORIDE
  20. PEPCID [Concomitant]
     Active Substance: FAMOTIDINE
     Dosage: UNK
     Route: 065
  21. SPIRIVA RESPIMAT [Concomitant]
     Active Substance: TIOTROPIUM BROMIDE
     Dosage: UNK
     Route: 065
  22. XOLAIR [Concomitant]
     Active Substance: OMALIZUMAB
     Dosage: UNK
     Route: 065
  23. TYLENOL [Concomitant]
     Active Substance: ACETAMINOPHEN
     Dosage: UNK
     Route: 065
  24. TRIAMCINOLONE ACETONIDE [Concomitant]
     Active Substance: TRIAMCINOLONE ACETONIDE
     Dosage: UNK
     Route: 065
  25. PROAIR HFA [Concomitant]
     Active Substance: ALBUTEROL SULFATE
     Dosage: UNK
     Route: 065
  26. FOLATE SODIUM [Concomitant]
     Active Substance: FOLATE SODIUM
     Dosage: UNK
     Route: 065
  27. RITALIN [Concomitant]
     Active Substance: METHYLPHENIDATE HYDROCHLORIDE
     Dosage: UNK
     Route: 065
  28. VITAMIN B12 [Concomitant]
     Active Substance: CYANOCOBALAMIN
     Dosage: UNK
     Route: 065
  29. CLOBETASOL PROPIONATE [Concomitant]
     Active Substance: CLOBETASOL PROPIONATE
     Dosage: UNK
     Route: 065
  30. CYMBALTA [Concomitant]
     Active Substance: DULOXETINE HYDROCHLORIDE
     Dosage: UNK
     Route: 065
  31. LIDOCAINE [Concomitant]
     Active Substance: LIDOCAINE
     Dosage: UNK
     Route: 065
  32. COLACE [Concomitant]
     Active Substance: DOCUSATE SODIUM
     Dosage: UNK
     Route: 065
  33. MUCINEX [Concomitant]
     Active Substance: GUAIFENESIN
     Dosage: UNK
     Route: 065

REACTIONS (1)
  - Diarrhoea [Unknown]
